FAERS Safety Report 8363427-1 (Version None)
Quarter: 2012Q2

REPORT INFORMATION
  Report Type: 
  Country: None (occurrence: None)
  Receive Date: 20120516
  Receipt Date: 20120509
  Transmission Date: 20120825
  Serious: Yes (Other)
  Sender: FDA-Public Use
  Company Number: IN-PFIZER INC-2012115543

PATIENT
  Age: 68 Year
  Sex: Male

DRUGS (6)
  1. SUTENT [Suspect]
     Dosage: 37.5 MG, 1X/DAY (28 DAYS, 14 DAYS GAP)
     Dates: start: 20111111, end: 20111209
  2. SUTENT [Suspect]
     Dosage: 37.5 MG, 1X/DAY (4 WEEKS, 2 CYCLES)
  3. SUTENT [Suspect]
     Indication: METASTATIC RENAL CELL CARCINOMA
     Dosage: 50 MG, 1X/DAY
     Route: 048
  4. SUTENT [Suspect]
     Dosage: 50 MG, 1X/DAY
     Dates: start: 20110630, end: 20110728
  5. SUTENT [Suspect]
     Dosage: 37.5 MG, 1X/DAY
     Dates: start: 20120220, end: 20120319
  6. SUTENT [Suspect]
     Dosage: 37.5 MG, 1X/DAY
     Dates: start: 20111223, end: 20120120

REACTIONS (3)
  - ASTHENIA [None]
  - VOMITING [None]
  - DYSENTERY [None]
